FAERS Safety Report 9953865 (Version 9)
Quarter: 2015Q2

REPORT INFORMATION
  Report Type: Report from Study
  Country: US (occurrence: US)
  Receive Date: 20140304
  Receipt Date: 20150625
  Transmission Date: 20150821
  Serious: Yes (Hospitalization)
  Sender: FDA-Public Use
  Company Number: US-SANOFI-AVENTIS-2013SA080574

PATIENT
  Age: 55 Year
  Sex: Female

DRUGS (3)
  1. AUBAGIO [Suspect]
     Active Substance: TERIFLUNOMIDE
     Indication: MULTIPLE SCLEROSIS
     Route: 048
     Dates: start: 20121123, end: 20140815
  2. PREDNISONE. [Concomitant]
     Active Substance: PREDNISONE
     Dosage: FORM: PILL
  3. AUBAGIO [Suspect]
     Active Substance: TERIFLUNOMIDE
     Indication: MULTIPLE SCLEROSIS
     Route: 048

REACTIONS (12)
  - Depression [Unknown]
  - Decreased appetite [Unknown]
  - Headache [Unknown]
  - Coronary artery bypass [Unknown]
  - Malaise [Unknown]
  - Feeling abnormal [Unknown]
  - Sweat gland disorder [Unknown]
  - Asthenia [Unknown]
  - Stress [Unknown]
  - Fatigue [Unknown]
  - Drug dose omission [Unknown]
  - Gait disturbance [Unknown]

NARRATIVE: CASE EVENT DATE: 201309
